FAERS Safety Report 16371804 (Version 3)
Quarter: 2019Q2

REPORT INFORMATION
  Report Type: Spontaneous
  Country: US (occurrence: US)
  Receive Date: 20190530
  Receipt Date: 20190624
  Transmission Date: 20190711
  Serious: No
  Sender: FDA-Public Use
  Company Number: US-PFIZER INC-2019229679

PATIENT

DRUGS (2)
  1. ADVIL [Suspect]
     Active Substance: IBUPROFEN
     Dosage: UNK
     Dates: start: 2017
  2. ADVIL [Suspect]
     Active Substance: IBUPROFEN
     Dosage: UNK (INCREASING IT TO ONE OR TWO PER DAY)

REACTIONS (2)
  - Bronchitis [Unknown]
  - Blood glucose increased [Unknown]
